FAERS Safety Report 12965774 (Version 1)
Quarter: 2016Q4

REPORT INFORMATION
  Report Type: Spontaneous
  Country: IT (occurrence: IT)
  Receive Date: 20161122
  Receipt Date: 20161122
  Transmission Date: 20170207
  Serious: Yes (Other)
  Sender: FDA-Public Use
  Company Number: IT-ELI_LILLY_AND_COMPANY-IT201611003775

PATIENT
  Age: 79 Year
  Sex: Male
  Weight: 65 kg

DRUGS (7)
  1. LANSOPRAZOLE. [Concomitant]
     Active Substance: LANSOPRAZOLE
     Dosage: UNK, UNKNOWN
     Route: 048
  2. RANEXA [Concomitant]
     Active Substance: RANOLAZINE
     Dosage: UNK, UNKNOWN
     Route: 048
  3. CARDIOASPIRIN [Concomitant]
     Active Substance: ASPIRIN
     Dosage: 1 DF, UNKNOWN
     Route: 048
  4. ATENOLOL. [Concomitant]
     Active Substance: ATENOLOL
     Dosage: UNK, UNKNOWN
     Route: 048
  5. TORVAST [Concomitant]
     Active Substance: ATORVASTATIN
     Dosage: UNK, UNKNOWN
     Route: 048
  6. FINASTID [Concomitant]
     Dosage: UNK, UNKNOWN
     Route: 048
  7. ABASAGLAR [Suspect]
     Active Substance: INSULIN GLARGINE
     Indication: TYPE 1 DIABETES MELLITUS
     Dosage: 1 DF, QD
     Route: 058
     Dates: start: 20160830, end: 20161013

REACTIONS (6)
  - Insomnia [Recovered/Resolved with Sequelae]
  - Blood glucose fluctuation [Recovered/Resolved with Sequelae]
  - Nervous system disorder [Recovered/Resolved with Sequelae]
  - Confusional state [Recovered/Resolved with Sequelae]
  - Cognitive disorder [Unknown]
  - Hypoglycaemia [Recovered/Resolved with Sequelae]

NARRATIVE: CASE EVENT DATE: 20160830
